FAERS Safety Report 8251497-0 (Version None)
Quarter: 2012Q2

REPORT INFORMATION
  Report Type: 
  Country: None (occurrence: None)
  Receive Date: 20120402
  Receipt Date: 20120329
  Transmission Date: 20120825
  Serious: Yes (Other)
  Sender: FDA-Public Use
  Company Number: DE-PFIZER INC-2011133475

PATIENT
  Sex: Male

DRUGS (2)
  1. NICORETTE [Suspect]
     Dosage: 10 MG, 4X/DAY
     Dates: start: 20110501
  2. NICORETTE [Suspect]
     Dosage: 10 MG, 5 TIMES IN A DAY (FOUR TO FIVE INHALERS PER DAY))
     Route: 055
     Dates: start: 20110501

REACTIONS (4)
  - WITHDRAWAL SYNDROME [None]
  - SUICIDAL IDEATION [None]
  - UNDERDOSE [None]
  - AGGRESSION [None]
